FAERS Safety Report 13032589 (Version 1)
Quarter: 2016Q4

REPORT INFORMATION
  Report Type: Spontaneous
  Country: US (occurrence: US)
  Receive Date: 20161215
  Receipt Date: 20161215
  Transmission Date: 20170207
  Serious: No
  Sender: FDA-Public Use
  Company Number: US-PFIZER INC-2016582451

PATIENT
  Sex: Female

DRUGS (7)
  1. PREDNISONE. [Suspect]
     Active Substance: PREDNISONE
  2. ERYTHROMYCIN. [Suspect]
     Active Substance: ERYTHROMYCIN
  3. CODEINE [Suspect]
     Active Substance: CODEINE
  4. LYRICA [Suspect]
     Active Substance: PREGABALIN
  5. GABAPENTIN. [Suspect]
     Active Substance: GABAPENTIN
  6. AUGMENTIN [Suspect]
     Active Substance: AMOXICILLIN\CLAVULANATE POTASSIUM
  7. KEFLEX [Suspect]
     Active Substance: CEPHALEXIN

REACTIONS (1)
  - Drug hypersensitivity [Unknown]
